FAERS Safety Report 4686082-0 (Version None)
Quarter: 2005Q2

REPORT INFORMATION
  Report Type: 
  Country: None (occurrence: None)
  Receive Date: 20050609
  Receipt Date: 19901107
  Transmission Date: 20051028
  Serious: Yes (Disabling, Other)
  Sender: FDA-Public Use
  Company Number: 199020479HAG

PATIENT
  Age: 76 Year
  Sex: Male
  Weight: 64 kg

DRUGS (4)
  1. FUROSEMIDE [Suspect]
     Route: 048
  2. CORDARONE [Suspect]
     Route: 048
     Dates: start: 19891201
  3. ISORDIL [Suspect]
     Route: 048
  4. SLOW-K [Suspect]
     Dosage: DOSE: 4X1
     Route: 048

REACTIONS (2)
  - CARDIOMEGALY [None]
  - PULMONARY FIBROSIS [None]
